FAERS Safety Report 21331896 (Version 1)
Quarter: 2022Q3

REPORT INFORMATION
  Report Type: Spontaneous
  Country: JP (occurrence: JP)
  Receive Date: 20220914
  Receipt Date: 20220914
  Transmission Date: 20221026
  Serious: Yes (Other)
  Sender: FDA-Public Use
  Company Number: JP-CHUGAI-2022035099

PATIENT
  Age: 40 Year
  Sex: Male

DRUGS (1)
  1. AVASTIN [Suspect]
     Active Substance: BEVACIZUMAB
     Indication: Brain neoplasm
     Dosage: UNK UNK, ONCE/2WEEKS
     Route: 041

REACTIONS (1)
  - Large intestine polyp [Unknown]
